FAERS Safety Report 8319385-9 (Version None)
Quarter: 2012Q2

REPORT INFORMATION
  Report Type: 
  Country: None (occurrence: None)
  Receive Date: 20120427
  Receipt Date: 20120423
  Transmission Date: 20120825
  Serious: Yes (Death)
  Sender: FDA-Public Use
  Company Number: PHHY2012US035602

PATIENT
  Age: 62 Year
  Sex: Female

DRUGS (6)
  1. TRAZODONE HCL [Suspect]
  2. BUPROPION HYDROCHLORIDE [Suspect]
  3. MUSCLE RELAXANTS [Suspect]
  4. IMIPRAMINE [Suspect]
  5. DIPHENHYDRAMINE HCL [Suspect]
  6. LAXATIVES [Suspect]

REACTIONS (1)
  - DEATH [None]
